FAERS Safety Report 21182148 (Version 2)
Quarter: 2022Q3

REPORT INFORMATION
  Report Type: Spontaneous
  Country: US (occurrence: None)
  Receive Date: 20220807
  Receipt Date: 20220914
  Transmission Date: 20221027
  Serious: No
  Sender: FDA-Public Use
  Company Number: 2022A259672

PATIENT
  Age: 74 Year
  Sex: Male
  Weight: 90.7 kg

DRUGS (2)
  1. BYDUREON BCISE [Suspect]
     Active Substance: EXENATIDE
     Indication: Type 2 diabetes mellitus
     Route: 058
     Dates: start: 2020
  2. BYDUREON [Suspect]
     Active Substance: EXENATIDE
     Indication: Type 2 diabetes mellitus
     Route: 058
     Dates: end: 2020

REACTIONS (7)
  - Injection site haemorrhage [Recovered/Resolved]
  - Product dose omission issue [Recovered/Resolved]
  - Wrong technique in device usage process [Unknown]
  - Device use issue [Unknown]
  - Intentional device misuse [Unknown]
  - Device leakage [Unknown]
  - Device delivery system issue [Unknown]

NARRATIVE: CASE EVENT DATE: 20200101
